FAERS Safety Report 15182378 (Version 1)
Quarter: 2018Q3

REPORT INFORMATION
  Report Type: Report from Study
  Country: US (occurrence: US)
  Receive Date: 20180723
  Receipt Date: 20180723
  Transmission Date: 20181010
  Serious: No
  Sender: FDA-Public Use
  Company Number: US-AMGEN-USASL2018094081

PATIENT
  Age: 57 Year
  Sex: Male

DRUGS (1)
  1. REPATHA [Suspect]
     Active Substance: EVOLOCUMAB
     Indication: HYPERCHOLESTEROLAEMIA
     Dosage: 140 MG, Q2WK
     Route: 065
     Dates: start: 20180703

REACTIONS (10)
  - Dizziness [Unknown]
  - Vision blurred [Unknown]
  - Blood pressure increased [Unknown]
  - Diarrhoea [Unknown]
  - Headache [Unknown]
  - Fatigue [Unknown]
  - Back pain [Unknown]
  - Myalgia [Unknown]
  - Arthralgia [Unknown]
  - Pyrexia [Unknown]

NARRATIVE: CASE EVENT DATE: 20180706
